FAERS Safety Report 13672964 (Version 1)
Quarter: 2017Q2

REPORT INFORMATION
  Report Type: Spontaneous
  Country: DK (occurrence: DK)
  Receive Date: 20170621
  Receipt Date: 20170621
  Transmission Date: 20170830
  Serious: Yes (Other)
  Sender: FDA-Public Use
  Company Number: DK-RARE DISEASE THERAPEUTICS, INC.-2022329

PATIENT
  Age: 22 Year
  Sex: Female

DRUGS (4)
  1. AZATHIOPRINE. [Suspect]
     Active Substance: AZATHIOPRINE
  2. MESALAZINE [Suspect]
     Active Substance: MESALAMINE
  3. PURIXAN [Suspect]
     Active Substance: MERCAPTOPURINE
     Indication: COLITIS ULCERATIVE
  4. PREDNISOLONE. [Suspect]
     Active Substance: PREDNISOLONE

REACTIONS (3)
  - Fungal infection [Unknown]
  - Immunodeficiency [Unknown]
  - Off label use [Unknown]
